FAERS Safety Report 8152436-3 (Version None)
Quarter: 2012Q1

REPORT INFORMATION
  Report Type: 
  Country: None (occurrence: None)
  Receive Date: 20120103
  Receipt Date: 20111004
  Transmission Date: 20120608
  Serious: No
  Sender: FDA-Public Use
  Company Number: AE-2011-002025

PATIENT
  Sex: Female

DRUGS (3)
  1. PEGASYS [Concomitant]
  2. RIBAVIRIN [Concomitant]
  3. INCIVEK [Suspect]
     Dosage: 1125 MG (375 MG,3 IN 1 D),ORAL
     Route: 048
     Dates: start: 20110928

REACTIONS (1)
  - RASH [None]
